FAERS Safety Report 24760604 (Version 1)
Quarter: 2024Q4

REPORT INFORMATION
  Report Type: Spontaneous
  Country: FR (occurrence: FR)
  Receive Date: 20241220
  Receipt Date: 20241220
  Transmission Date: 20250115
  Serious: Yes (Life-Threatening, Hospitalization)
  Sender: TEVA
  Company Number: None

PATIENT
  Age: 75 Year
  Sex: Female

DRUGS (9)
  1. DULOXETINE [Interacting]
     Active Substance: DULOXETINE
     Indication: Depression
     Dosage: DULOXETINE (HYDROCHLORIDE)
     Route: 048
  2. MAGNESIUM ACETATE TETRAHYDRATE [Concomitant]
     Active Substance: MAGNESIUM ACETATE TETRAHYDRATE
     Indication: Product used for unknown indication
     Route: 048
  3. CONCENTRATED PHOSPHORIC ACID [Concomitant]
     Indication: Product used for unknown indication
     Route: 048
  4. ELIQUIS [Interacting]
     Active Substance: APIXABAN
     Indication: Atrial fibrillation
     Route: 048
     Dates: start: 202407, end: 202410
  5. BISOPROLOL FUMARATE [Concomitant]
     Active Substance: BISOPROLOL FUMARATE
     Indication: Product used for unknown indication
     Route: 048
  6. GAVISCON [Concomitant]
     Active Substance: ALUMINUM HYDROXIDE\MAGNESIUM CARBONATE
     Indication: Product used for unknown indication
     Route: 048
  7. PYRIDOXINE HYDROCHLORIDE\THIAMINE HYDROCHLORIDE [Concomitant]
     Active Substance: PYRIDOXINE HYDROCHLORIDE\THIAMINE HYDROCHLORIDE
     Indication: Product used for unknown indication
     Route: 048
  8. OXAZEPAM [Concomitant]
     Active Substance: OXAZEPAM
     Indication: Product used for unknown indication
     Route: 048
  9. ATORVASTATIN [Concomitant]
     Active Substance: ATORVASTATIN
     Indication: Dyslipidaemia
     Route: 048

REACTIONS (1)
  - Haemorrhage [Recovering/Resolving]

NARRATIVE: CASE EVENT DATE: 20240820
